FAERS Safety Report 20486807 (Version 1)
Quarter: 2022Q1

REPORT INFORMATION
  Report Type: Spontaneous
  Country: US (occurrence: US)
  Receive Date: 20220217
  Receipt Date: 20220217
  Transmission Date: 20220424
  Serious: Yes (Death, Other)
  Sender: FDA-Public Use
  Company Number: US-PFIZER INC-202200256761

PATIENT
  Age: 64 Year
  Sex: Male

DRUGS (5)
  1. GABAPENTIN [Suspect]
     Active Substance: GABAPENTIN
     Dosage: UNK (INGESTION)
     Route: 048
  2. TRAZODONE [Suspect]
     Active Substance: TRAZODONE HYDROCHLORIDE
     Dosage: UNK(INGESTION)
     Route: 048
  3. ACETAMINOPHEN\HYDROCODONE [Suspect]
     Active Substance: ACETAMINOPHEN\HYDROCODONE
     Dosage: UNK, INGESTION
     Route: 048
  4. VALPROIC ACID [Suspect]
     Active Substance: VALPROIC ACID
     Dosage: UNK (INGESTION)
     Route: 048
  5. ACETAMINOPHEN [Suspect]
     Active Substance: ACETAMINOPHEN
     Dosage: UNK (INGESTION)
     Route: 048

REACTIONS (3)
  - Completed suicide [Fatal]
  - Cardiac arrest [Fatal]
  - Respiratory arrest [Fatal]

NARRATIVE: CASE EVENT DATE: 20200101
